FAERS Safety Report 19989096 (Version 1)
Quarter: 2021Q4

REPORT INFORMATION
  Report Type: Spontaneous
  Country: US (occurrence: US)
  Receive Date: 20211025
  Receipt Date: 20211025
  Transmission Date: 20220304
  Serious: No
  Sender: FDA-Public Use
  Company Number: US-JNJFOC-20211039869

PATIENT
  Age: 48 Year
  Sex: Female

DRUGS (4)
  1. PEPCID [Suspect]
     Active Substance: FAMOTIDINE
     Indication: Paraesthesia
     Route: 065
     Dates: start: 2021
  2. PEPCID [Suspect]
     Active Substance: FAMOTIDINE
     Indication: Paraesthesia oral
  3. PEPCID [Suspect]
     Active Substance: FAMOTIDINE
     Indication: Vaccination complication
  4. COVID-19 VACCINE [Concomitant]
     Indication: COVID-19 immunisation
     Route: 065
     Dates: start: 20210731

REACTIONS (3)
  - Paraesthesia [Unknown]
  - Headache [Unknown]
  - Product use in unapproved indication [Unknown]

NARRATIVE: CASE EVENT DATE: 20210101
